FAERS Safety Report 6314533-4 (Version None)
Quarter: 2009Q3

REPORT INFORMATION
  Report Type: 
  Country: None (occurrence: None)
  Receive Date: 20090819
  Receipt Date: 20090810
  Transmission Date: 20100115
  Serious: Yes (Hospitalization, Other)
  Sender: FDA-Public Use
  Company Number: PHHY2009AU26948

PATIENT
  Sex: Female

DRUGS (7)
  1. CLOZARIL [Suspect]
     Indication: SCHIZOPHRENIA
     Dosage: UNK
     Dates: start: 19980521
  2. CLOZARIL [Suspect]
     Dosage: 150 MG, QD
  3. CLOZARIL [Suspect]
     Dosage: 100 MG, QD
  4. CLOZARIL [Suspect]
     Dosage: 25 MG, QD
     Dates: end: 20090603
  5. CLOZARIL [Suspect]
     Dosage: UNK
  6. AVAPRO [Concomitant]
     Indication: HYPERTENSION
     Dosage: 300 MG DAILY
     Dates: start: 20000101
  7. ZELDOX [Concomitant]
     Indication: SCHIZOPHRENIA
     Dosage: 40 MG, BID
     Dates: start: 20080603

REACTIONS (8)
  - CARDIAC FAILURE [None]
  - CARDIOMEGALY [None]
  - DYSPNOEA [None]
  - JUGULAR VEIN DISTENSION [None]
  - LEFT VENTRICULAR HYPERTROPHY [None]
  - OEDEMA PERIPHERAL [None]
  - ORTHOPNOEA [None]
  - WEIGHT INCREASED [None]
